FAERS Safety Report 8305160-8 (Version None)
Quarter: 2012Q2

REPORT INFORMATION
  Report Type: 
  Country: None (occurrence: None)
  Receive Date: 20120405
  Receipt Date: 20120327
  Transmission Date: 20120825
  Serious: Yes (Other)
  Sender: FDA-Public Use
  Company Number: 2012031608

PATIENT
  Age: 33 Year
  Sex: Female
  Weight: 96.1626 kg

DRUGS (22)
  1. DOXEPIN HCL [Concomitant]
  2. METOPROLOL TARTRATE [Concomitant]
  3. AMBIEN [Concomitant]
  4. LIPITOR [Concomitant]
  5. ZYRTEC [Concomitant]
  6. CYMBALTA [Concomitant]
  7. PATANASE [Concomitant]
  8. MELATONIN (MELATONIN) [Concomitant]
  9. ONE A DAY (ACCOMIN MULTIVITAMIN) [Concomitant]
  10. ELMIRON [Concomitant]
  11. HIZENTRA [Suspect]
     Indication: IMMUNODEFICIENCY COMMON VARIABLE
     Dosage: (16 G 1X/WEEK, 4 GM 20 ML VIAL; 80 ML IN 4 SITES OVER 1 HOUR SUBCUTANEOUS)
     Route: 058
     Dates: start: 20100819
  12. VAGIFEM [Concomitant]
  13. DUONEB [Concomitant]
  14. ELESTAT (EPINASSTINE HYDROCHLORIDE) [Concomitant]
  15. NASACORT [Concomitant]
  16. DETROL [Concomitant]
  17. GABAPENTIN [Concomitant]
  18. TRAMADOL HCL [Concomitant]
  19. CLONAZEPAM [Concomitant]
  20. PROVENTIL [Concomitant]
  21. LEVOTHYROXINE SODIUM [Concomitant]
  22. BUSPAR [Concomitant]

REACTIONS (1)
  - URINARY TRACT INFECTION [None]
